FAERS Safety Report 23064185 (Version 1)
Quarter: 2023Q4

REPORT INFORMATION
  Report Type: Spontaneous
  Country: DE (occurrence: DE)
  Receive Date: 20231013
  Receipt Date: 20231013
  Transmission Date: 20240109
  Serious: Yes (Other)
  Sender: FDA-Public Use
  Company Number: None

PATIENT
  Sex: Female

DRUGS (1)
  1. METFORMIN [Suspect]
     Active Substance: METFORMIN HYDROCHLORIDE
     Indication: Insulin resistance
     Dosage: FIRST 3X DAILY
     Route: 065
     Dates: start: 2019

REACTIONS (12)
  - Headache [Unknown]
  - Abdominal pain [Unknown]
  - Food craving [Unknown]
  - Abdominal distension [Unknown]
  - Autonomic seizure [Unknown]
  - Nervousness [Unknown]
  - Product use in unapproved indication [Unknown]
  - Decreased appetite [Unknown]
  - Vomiting [Unknown]
  - Fatigue [Unknown]
  - Nausea [Unknown]
  - Blood glucose fluctuation [Unknown]
